FAERS Safety Report 23597532 (Version 1)
Quarter: 2024Q1

REPORT INFORMATION
  Report Type: Spontaneous
  Country: US (occurrence: None)
  Receive Date: 20240305
  Receipt Date: 20240305
  Transmission Date: 20240409
  Serious: Yes (Death, Hospitalization, Other)
  Sender: FDA-Public Use
  Company Number: None

PATIENT
  Age: 65 Year
  Sex: Male
  Weight: 109.2 kg

DRUGS (1)
  1. YESCARTA [Suspect]
     Active Substance: AXICABTAGENE CILOLEUCEL

REACTIONS (8)
  - Cytokine release syndrome [None]
  - Infusion related reaction [None]
  - Hypoxia [None]
  - Tachypnoea [None]
  - Haemophagocytic lymphohistiocytosis [None]
  - Haemophagocytic lymphohistiocytosis [None]
  - Neurotoxicity [None]
  - Acute kidney injury [None]

NARRATIVE: CASE EVENT DATE: 20240131
